FAERS Safety Report 15304903 (Version 2)
Quarter: 2018Q3

REPORT INFORMATION
  Report Type: Report from Study
  Country: None (occurrence: US)
  Receive Date: 20180822
  Receipt Date: 20180919
  Transmission Date: 20181010
  Serious: Yes (Other)
  Sender: FDA-Public Use
  Company Number: US-ABBVIE-18K-163-2453021-00

PATIENT
  Sex: Female

DRUGS (1)
  1. HUMIRA [Suspect]
     Active Substance: ADALIMUMAB
     Indication: RHEUMATOID ARTHRITIS
     Route: 058

REACTIONS (7)
  - Seizure [Unknown]
  - Hepatic neoplasm [Recovered/Resolved]
  - Allergic cough [Unknown]
  - Hypersensitivity [Unknown]
  - Systemic lupus erythematosus [Not Recovered/Not Resolved]
  - Feeling abnormal [Unknown]
  - Nodule [Recovered/Resolved]
